FAERS Safety Report 18272049 (Version 1)
Quarter: 2020Q3

REPORT INFORMATION
  Report Type: Spontaneous
  Country: US (occurrence: US)
  Receive Date: 20200521
  Receipt Date: 20200521
  Transmission Date: 20201103
  Serious: Yes (Other)
  Sender: FDA-Public Use
  Company Number: None

PATIENT
  Sex: Female

DRUGS (1)
  1. IVERMECTIN. [Suspect]
     Active Substance: IVERMECTIN
     Indication: COVID-19
     Dosage: ?          OTHER DOSE:0.3 MG/KG;?
     Dates: start: 2020

REACTIONS (2)
  - Product use in unapproved indication [None]
  - Suspected COVID-19 [None]
